FAERS Safety Report 7792036-8 (Version None)
Quarter: 2011Q4

REPORT INFORMATION
  Report Type: 
  Country: None (occurrence: None)
  Receive Date: 20111003
  Receipt Date: 20110927
  Transmission Date: 20120403
  Serious: Yes (Death)
  Sender: FDA-Public Use
  Company Number: US-AMGEN-USASP2011048993

PATIENT
  Age: 76 Year
  Sex: Male
  Weight: 59.41 kg

DRUGS (3)
  1. NPLATE [Suspect]
     Indication: THROMBOCYTOPENIA
     Dates: start: 20110401, end: 20110526
  2. CORTICOSTEROIDS [Concomitant]
     Indication: THROMBOCYTOPENIA
  3. IVIGLOB-EX [Concomitant]
     Indication: THROMBOCYTOPENIA

REACTIONS (3)
  - OEDEMA PERIPHERAL [None]
  - METASTATIC MALIGNANT MELANOMA [None]
  - METASTASES TO CENTRAL NERVOUS SYSTEM [None]
